FAERS Safety Report 5133124-4 (Version None)
Quarter: 2006Q4

REPORT INFORMATION
  Report Type: 
  Country: None (occurrence: None)
  Receive Date: 20061017
  Receipt Date: 20061010
  Transmission Date: 20070319
  Serious: Yes (Hospitalization)
  Sender: FDA-Public Use
  Company Number: HQWYE868110OCT06

PATIENT
  Age: 67 Year
  Sex: Female

DRUGS (8)
  1. AVLOCARDYL (PROPRANOLOL HYDROCHLORIDE, TABLET) [Suspect]
     Dosage: 20 MG 1X PER 1 DAY; ORAL
     Route: 048
  2. ALDACTONE [Suspect]
     Dosage: ^LONG LASTING TREATMENT^
  3. COTAREG (HYDROCHLOROTHIAZIDE/VALSARTAN, ) [Suspect]
     Dosage: 1 DOSAGE FORM 1X PER 1 DAY; ORAL
     Route: 048
  4. DIGOXIN [Suspect]
     Dosage: ^LONG LASTING TREATMENT^
  5. EUPRESSYL (URAPIDIL, ) [Suspect]
     Dosage: 120 MG 1X PER 1 DAY; ORAL
  6. FUROSEMIDE [Suspect]
     Dosage: 20 MG 1X PER 1 DAY; ORAL
     Route: 048
  7. PROZAC [Suspect]
     Dosage: 1 DOSAGE FORM 1X PER 1 DAY; ORAL
     Route: 048
  8. SINTROM [Suspect]
     Dosage: 0.75 DOSAGE FORM 1X PER 1 DAY; ORAL
     Route: 048

REACTIONS (3)
  - PRURITUS [None]
  - SCRATCH [None]
  - THERAPY NON-RESPONDER [None]
